FAERS Safety Report 11003612 (Version 2)
Quarter: 2015Q2

REPORT INFORMATION
  Report Type: Spontaneous
  Country: US (occurrence: US)
  Receive Date: 20150409
  Receipt Date: 20150414
  Transmission Date: 20150821
  Serious: Yes (Other)
  Sender: FDA-Public Use
  Company Number: US-RB-075667-15

PATIENT
  Age: 64 Year
  Sex: Female

DRUGS (3)
  1. MUCINEX SINUS-MAX PRESSURE AND PAIN [Suspect]
     Active Substance: ACETAMINOPHEN\GUAIFENESIN\PHENYLEPHRINE HYDROCHLORIDE
     Indication: RESPIRATORY TRACT CONGESTION
     Dosage: EVERY 12 HOURS (AMOUNT USED: 2). SHE LAST TOOK THE DRUG ON 26-MAR-2015.
     Route: 065
     Dates: start: 20150325
  2. MUCINEX SINUS-MAX PRESSURE AND PAIN [Suspect]
     Active Substance: ACETAMINOPHEN\GUAIFENESIN\PHENYLEPHRINE HYDROCHLORIDE
     Indication: COUGH
     Dosage: EVERY 12 HOURS (AMOUNT USED: 2). SHE LAST TOOK THE DRUG ON 26-MAR-2015.
     Route: 065
     Dates: start: 20150325
  3. MUCINEX SINUS-MAX PRESSURE AND PAIN [Suspect]
     Active Substance: ACETAMINOPHEN\GUAIFENESIN\PHENYLEPHRINE HYDROCHLORIDE
     Indication: PYREXIA
     Dosage: EVERY 12 HOURS (AMOUNT USED: 2). SHE LAST TOOK THE DRUG ON 26-MAR-2015.
     Route: 065
     Dates: start: 20150325

REACTIONS (3)
  - Nervousness [Unknown]
  - Drug ineffective [Not Recovered/Not Resolved]
  - Loss of consciousness [Recovered/Resolved]

NARRATIVE: CASE EVENT DATE: 20150327
